FAERS Safety Report 26053284 (Version 1)
Quarter: 2025Q4

REPORT INFORMATION
  Report Type: Report from Study
  Country: US (occurrence: US)
  Receive Date: 20251117
  Receipt Date: 20251117
  Transmission Date: 20260117
  Serious: Yes (Other)
  Sender: ROCHE
  Company Number: US-ROCHE-10000417208

PATIENT
  Age: 75 Year
  Sex: Female

DRUGS (2)
  1. XOLAIR [Suspect]
     Active Substance: OMALIZUMAB
     Indication: Asthma
     Dosage: INJECT 375MG SUBCUTANEOUSLY EVERY 2 WEEK
     Route: 058
  2. XOLAIR [Suspect]
     Active Substance: OMALIZUMAB
     Dosage: INJECT 375MG SUBCUTANEOUSLY EVERY 2 WEEK
     Route: 058

REACTIONS (1)
  - Atrial fibrillation [Unknown]
